FAERS Safety Report 6396899-2 (Version None)
Quarter: 2009Q4

REPORT INFORMATION
  Report Type: 
  Country: None (occurrence: None)
  Receive Date: 20091012
  Receipt Date: 20090625
  Transmission Date: 20100525
  Serious: No
  Sender: FDA-Public Use
  Company Number: US-ASTRAZENECA-2009UW13917

PATIENT
  Age: 68 Year
  Sex: Female
  Weight: 86.6 kg

DRUGS (6)
  1. SYMBICORT [Suspect]
     Dosage: 160 UG 2 PUFFS TWO TIMES A DAY
     Route: 055
  2. SYMBICORT [Suspect]
     Dosage: 80 UG 2 PUFFS TWO TIMES A DAY
     Route: 055
  3. CHOLESTEROL MEDICINE [Concomitant]
     Indication: BLOOD CHOLESTEROL
  4. BLOOD PRESSURE MEDICINE [Concomitant]
     Indication: BLOOD PRESSURE
  5. WATER PILL [Concomitant]
  6. REQUIP [Concomitant]

REACTIONS (2)
  - DRUG INEFFECTIVE [None]
  - DYSPNOEA [None]
